FAERS Safety Report 19965292 (Version 3)
Quarter: 2022Q1

REPORT INFORMATION
  Report Type: Spontaneous
  Country: US (occurrence: US)
  Receive Date: 20211018
  Receipt Date: 20220106
  Transmission Date: 20220423
  Serious: No
  Sender: FDA-Public Use
  Company Number: US-MYLANLABS-2021M1071825

PATIENT
  Age: 45 Year
  Sex: Male
  Weight: 63.5 kg

DRUGS (10)
  1. CLONIDINE TRANSDERMAL SYSTEM [Suspect]
     Active Substance: CLONIDINE
     Indication: Hypertension
     Dosage: 0.3 MILLIGRAM, QD (WEEKLY)
     Route: 062
     Dates: start: 201909
  2. CLONIDINE TRANSDERMAL SYSTEM [Suspect]
     Active Substance: CLONIDINE
     Dosage: 0.3 MILLIGRAM, QD (WEEKLY)
     Route: 062
     Dates: start: 20211101
  3. HYDRALAZINE [Concomitant]
     Active Substance: HYDRALAZINE HYDROCHLORIDE
     Indication: Hypertension
     Dosage: 300 MILLIGRAM, BID
     Route: 048
     Dates: start: 201810
  4. LABETALOL [Concomitant]
     Active Substance: LABETALOL\LABETALOL HYDROCHLORIDE
     Indication: Blood pressure measurement
     Dosage: 200 MILLIGRAM, QD
     Route: 048
  5. NIFEDIPINE [Concomitant]
     Active Substance: NIFEDIPINE
     Indication: Hypertension
     Dosage: 90 MILLIGRAM, BID
     Route: 048
  6. LOSARTAN [Concomitant]
     Active Substance: LOSARTAN
     Indication: Blood pressure measurement
     Dosage: 50 MILLIGRAM, QD
     Route: 048
  7. CALCITRIOL [Concomitant]
     Active Substance: CALCITRIOL
     Indication: Bone disorder
     Dosage: 0.25 MILLIGRAM, QD
     Route: 048
  8. AMILORIDE [Concomitant]
     Active Substance: AMILORIDE
     Indication: Blood pressure measurement
     Dosage: 10 MILLIGRAM, QD
  9. FUROSEMIDE DIETHYLAMINOETHANOL [Concomitant]
     Indication: Blood pressure measurement
     Dosage: 40 MILLIGRAM, QD
  10. ASPIRIN ALUMINUM [Concomitant]
     Active Substance: ASPIRIN ALUMINUM
     Indication: Anticoagulant therapy
     Dosage: 81 MILLIGRAM, QD

REACTIONS (11)
  - Product adhesion issue [Not Recovered/Not Resolved]
  - Application site irritation [Not Recovered/Not Resolved]
  - Application site pruritus [Not Recovered/Not Resolved]
  - Application site exfoliation [Not Recovered/Not Resolved]
  - Application site haemorrhage [Not Recovered/Not Resolved]
  - Application site scar [Not Recovered/Not Resolved]
  - Application site pain [Unknown]
  - Scratch [Unknown]
  - Product quality issue [Unknown]
  - Application site burn [Unknown]
  - Application site erythema [Unknown]

NARRATIVE: CASE EVENT DATE: 20211101
